FAERS Safety Report 8575955-4 (Version None)
Quarter: 2012Q3

REPORT INFORMATION
  Report Type: 
  Country: None (occurrence: None)
  Receive Date: 20120807
  Receipt Date: 20120727
  Transmission Date: 20120928
  Serious: Yes (Hospitalization, Other)
  Sender: FDA-Public Use
  Company Number: US-BAYER-201034403NA

PATIENT
  Age: 19 Year
  Sex: Female
  Weight: 61.224 kg

DRUGS (4)
  1. AMBIEN [Concomitant]
     Indication: SLEEP DISORDER
  2. AMOXICILLIN [Concomitant]
     Dosage: 875 MG, UNK
     Dates: start: 20070821
  3. YASMIN [Suspect]
  4. ZOLOFT [Concomitant]
     Indication: DEPRESSION

REACTIONS (6)
  - THROMBOSIS [None]
  - OEDEMA PERIPHERAL [None]
  - CHOLECYSTECTOMY [None]
  - DEEP VEIN THROMBOSIS [None]
  - PULMONARY THROMBOSIS [None]
  - PULMONARY EMBOLISM [None]
